FAERS Safety Report 5912408-3 (Version None)
Quarter: 2008Q4

REPORT INFORMATION
  Report Type: 
  Country: None (occurrence: None)
  Receive Date: 20081008
  Receipt Date: 20080930
  Transmission Date: 20090506
  Serious: Yes (Other)
  Sender: FDA-Public Use
  Company Number: US-WATSON-2008-05853

PATIENT
  Age: 47 Year
  Sex: Male

DRUGS (3)
  1. DEXAMETHASONE TAB [Suspect]
     Indication: MULTIPLE MYELOMA
     Dosage: UNK
     Route: 065
     Dates: start: 20040101
  2. VINCRISTINE [Suspect]
     Indication: MULTIPLE MYELOMA
     Dosage: UNK
     Route: 042
     Dates: start: 20040101
  3. DOXORUBICIN HCL [Suspect]
     Indication: MULTIPLE MYELOMA
     Dosage: UNK
     Route: 042
     Dates: start: 20040101

REACTIONS (1)
  - GUILLAIN-BARRE SYNDROME [None]
